FAERS Safety Report 8295284-6 (Version None)
Quarter: 2012Q2

REPORT INFORMATION
  Report Type: 
  Country: None (occurrence: None)
  Receive Date: 20120418
  Receipt Date: 20120409
  Transmission Date: 20120825
  Serious: Yes (Other)
  Sender: FDA-Public Use
  Company Number: US-ASTRAZENECA-2012SE18603

PATIENT
  Age: 59 Year
  Sex: Female

DRUGS (4)
  1. PROTONIX [Concomitant]
  2. NEXIUM [Suspect]
     Route: 048
  3. PRILOSEC [Suspect]
     Dosage: FOUR TIMES A DAY
     Route: 048
  4. OTHERS [Concomitant]

REACTIONS (2)
  - MYOCARDIAL INFARCTION [None]
  - OESOPHAGEAL ULCER [None]
